FAERS Safety Report 7171315 (Version 4)
Quarter: 2014Q2

REPORT INFORMATION
  Report Type: Spontaneous
  Country: US (occurrence: US)
  Receive Date: 20091109
  Receipt Date: 20140422
  Transmission Date: 20141212
  Serious: Yes (Hospitalization, Other)
  Sender: FDA-Public Use
  Company Number: US-ASTRAZENECA-2009SE24460

PATIENT
  Age: 86 Year
  Sex: Female

DRUGS (27)
  1. NEXIUM [Suspect]
     Indication: BARRETT^S OESOPHAGUS
     Route: 048
  2. NEXIUM [Suspect]
     Indication: REFLUX GASTRITIS
     Route: 048
  3. LISINOPRIL [Suspect]
     Indication: RENAL DISORDER
     Route: 048
  4. LORTAB [Concomitant]
     Indication: PAIN
     Dosage: 10/450 MG EVERY 6 HOURS
     Route: 048
     Dates: start: 20090804
  5. FUROSEMIDE [Concomitant]
     Route: 048
  6. REGLAN [Concomitant]
     Route: 048
  7. TAZTIA XT [Concomitant]
     Route: 048
  8. LIPITOR [Concomitant]
     Indication: BLOOD CHOLESTEROL ABNORMAL
     Route: 048
  9. LEVOTHYROXINE [Concomitant]
     Indication: THYROID DISORDER
     Route: 048
     Dates: start: 1966
  10. ALPRAZOLAM [Concomitant]
     Indication: ANXIETY
     Route: 048
  11. SERTRALINE [Concomitant]
     Indication: DEPRESSION
     Route: 048
  12. SERTRALINE [Concomitant]
     Indication: DEPRESSION
     Route: 048
  13. XYLON [Concomitant]
  14. EXELON PATCH [Concomitant]
     Indication: DEMENTIA
     Dates: start: 2010
  15. EXELON PATCH [Concomitant]
     Indication: DEMENTIA ALZHEIMER^S TYPE
     Dates: start: 2010
  16. EXELON PATCH [Concomitant]
     Indication: DEMENTIA
     Dosage: 8 MG
  17. EXELON PATCH [Concomitant]
     Indication: DEMENTIA ALZHEIMER^S TYPE
     Dosage: 8 MG
  18. NASAL SPRAY [Concomitant]
     Indication: PRURITUS
     Dosage: UNK QD
     Route: 045
     Dates: start: 2010
  19. CARBLEVO [Concomitant]
     Indication: PARKINSON^S DISEASE
     Dosage: 25/100 MG TID
     Route: 048
     Dates: start: 2010
  20. CULTURELLE PROBIOTIC [Concomitant]
     Indication: REFLUX GASTRITIS
     Dosage: UNK QD
     Route: 048
     Dates: start: 2012
  21. NIACIN PILL [Concomitant]
     Indication: CARDIAC DISORDER
     Route: 048
     Dates: start: 2013
  22. COTU-10 [Concomitant]
     Indication: MEMORY IMPAIRMENT
     Route: 048
     Dates: start: 2009
  23. MULTI-VITAMIN [Concomitant]
     Indication: HYPOVITAMINOSIS
     Dosage: UNK, QD
     Route: 048
     Dates: start: 2010
  24. MEGA 3 CRUDE FISH OIL [Concomitant]
     Indication: CARDIAC DISORDER
     Dosage: UNK, QD
     Route: 048
     Dates: start: 2010
  25. BILTIAZEM [Concomitant]
     Indication: BLOOD PRESSURE ABNORMAL
     Route: 048
  26. D3 [Concomitant]
     Indication: GENERAL PHYSICAL HEALTH DETERIORATION
     Dosage: UNK, QD
     Route: 048
     Dates: start: 2010
  27. VITAMIN E [Concomitant]
     Route: 048

REACTIONS (19)
  - Upper limb fracture [Unknown]
  - Fall [Unknown]
  - Spinal fracture [Unknown]
  - Weight decreased [Unknown]
  - Aphagia [Unknown]
  - Decreased appetite [Unknown]
  - Pain [Unknown]
  - Cardiomegaly [Unknown]
  - Contusion [Unknown]
  - Parkinson^s disease [Unknown]
  - Limb injury [Unknown]
  - Musculoskeletal chest pain [Unknown]
  - Kyphosis [Unknown]
  - Gastrooesophageal reflux disease [Unknown]
  - Arthralgia [Unknown]
  - Hypersensitivity [Not Recovered/Not Resolved]
  - Pruritus [Unknown]
  - Off label use [Unknown]
  - Drug dose omission [Unknown]
